FAERS Safety Report 4399026-6 (Version None)
Quarter: 2004Q2

REPORT INFORMATION
  Report Type: 
  Country: None (occurrence: None)
  Receive Date: 20040621
  Receipt Date: 20040109
  Transmission Date: 20050107
  Serious: Yes (Hospitalization, Other)
  Sender: FDA-Public Use
  Company Number: USA-2003-0006869

PATIENT
  Age: 60 Year
  Sex: Male
  Weight: 78 kg

DRUGS (19)
  1. OXYCONTIN [Suspect]
     Indication: PAIN
     Dosage: 10 MG, TID, ORAL
     Route: 048
     Dates: start: 19981125
  2. SENOKOT [Concomitant]
  3. NEURONTIN [Concomitant]
  4. FLOMAX [Concomitant]
  5. SAW PALMETTO [Concomitant]
  6. PROSCAR [Concomitant]
  7. CARDURA [Concomitant]
  8. LASIX [Concomitant]
  9. VIOXX [Concomitant]
  10. ZOLOFT [Concomitant]
  11. ACETAMINOPHEN [Concomitant]
  12. MAALOX [Concomitant]
  13. MILK OF MAGNESIA TAB [Concomitant]
  14. ULTRACET [Concomitant]
  15. FLOVENT [Concomitant]
  16. COMBIVENT [Concomitant]
  17. TESTOSTERONE [Concomitant]
  18. XANAX [Concomitant]
  19. PHENERGAN [Concomitant]

REACTIONS (24)
  - ABDOMINAL PAIN [None]
  - ANXIETY [None]
  - BACK PAIN [None]
  - BENIGN PROSTATIC HYPERPLASIA [None]
  - CHILLS [None]
  - CONSTIPATION [None]
  - DEPRESSION [None]
  - DRUG DEPENDENCE [None]
  - DRUG TOLERANCE [None]
  - DRUG WITHDRAWAL SYNDROME [None]
  - DYSPNOEA [None]
  - HYPERHIDROSIS [None]
  - HYPOGONADISM MALE [None]
  - INSOMNIA [None]
  - NAUSEA [None]
  - NOCTURIA [None]
  - OEDEMA PERIPHERAL [None]
  - PAIN [None]
  - PANIC ATTACK [None]
  - RETCHING [None]
  - SUICIDAL IDEATION [None]
  - TREMOR [None]
  - URINARY RETENTION [None]
  - VOMITING [None]
